FAERS Safety Report 9277396 (Version 1)
Quarter: 2013Q2

REPORT INFORMATION
  Report Type: Spontaneous
  Country: US (occurrence: None)
  Receive Date: 20130503
  Receipt Date: 20130503
  Transmission Date: 20140414
  Serious: No
  Sender: FDA-Public Use
  Company Number: None

PATIENT
  Sex: Female

DRUGS (1)
  1. METHOTREXATE [Suspect]
     Indication: RHEUMATOID ARTHRITIS
     Dosage: EVERY 7 DAYS
     Route: 058
     Dates: start: 20120217, end: 20130501

REACTIONS (3)
  - Immune system disorder [None]
  - Gait disturbance [None]
  - Visual impairment [None]
